FAERS Safety Report 13608807 (Version 1)
Quarter: 2017Q2

REPORT INFORMATION
  Report Type: Report from Study
  Country: CA (occurrence: CA)
  Receive Date: 20170602
  Receipt Date: 20170602
  Transmission Date: 20170830
  Serious: Yes (Other)
  Sender: FDA-Public Use
  Company Number: CA-JNJFOC-20170525334

PATIENT
  Age: 78 Year
  Sex: Male
  Weight: 93 kg

DRUGS (1)
  1. REMICADE [Suspect]
     Active Substance: INFLIXIMAB
     Indication: CROHN^S DISEASE
     Route: 042
     Dates: start: 20140130

REACTIONS (4)
  - Pharyngeal cyst [Unknown]
  - Neoplasm [Unknown]
  - Prostate cancer [Unknown]
  - Blood iron increased [Unknown]

NARRATIVE: CASE EVENT DATE: 20170525
